FAERS Safety Report 12835939 (Version 1)
Quarter: 2016Q4

REPORT INFORMATION
  Report Type: Spontaneous
  Country: US (occurrence: US)
  Receive Date: 20161007
  Receipt Date: 20161007
  Transmission Date: 20170207
  Serious: Yes (Other)
  Sender: FDA-Public Use
  Company Number: None

PATIENT
  Age: 53 Year
  Sex: Male
  Weight: 32.66 kg

DRUGS (1)
  1. FORTEO [Suspect]
     Active Substance: TERIPARATIDE
     Indication: OSTEOPOROSIS
     Route: 058
     Dates: start: 20160525

REACTIONS (5)
  - Arthralgia [None]
  - Anxiety [None]
  - Restlessness [None]
  - Depression [None]
  - Irritability [None]

NARRATIVE: CASE EVENT DATE: 20160701
